FAERS Safety Report 16395071 (Version 1)
Quarter: 2019Q2

REPORT INFORMATION
  Report Type: Spontaneous
  Country: DE (occurrence: DE)
  Receive Date: 20190605
  Receipt Date: 20190605
  Transmission Date: 20190711
  Serious: Yes (Other)
  Sender: FDA-Public Use
  Company Number: DE-BAYER-2019-103942

PATIENT
  Sex: Male
  Weight: 84 kg

DRUGS (1)
  1. GADOVIST [Suspect]
     Active Substance: GADOBUTROL

REACTIONS (12)
  - Myalgia [None]
  - Food allergy [None]
  - Disturbance in attention [None]
  - Arrhythmia [None]
  - Visual impairment [None]
  - Muscle twitching [None]
  - Formication [None]
  - Gastritis [None]
  - Hypotension [None]
  - Body temperature decreased [None]
  - Poor quality sleep [None]
  - Feeling cold [None]
